FAERS Safety Report 10228572 (Version 1)
Quarter: 2014Q2

REPORT INFORMATION
  Report Type: Spontaneous
  Country: CN (occurrence: CN)
  Receive Date: 20140610
  Receipt Date: 20140610
  Transmission Date: 20141212
  Serious: Yes (Other)
  Sender: FDA-Public Use
  Company Number: CN-ASTRAZENECA-2014SE40309

PATIENT
  Age: 905 Month
  Sex: Male
  Weight: 60 kg

DRUGS (1)
  1. ROSUVASTATIN CALCIUM [Suspect]
     Indication: THERAPEUTIC PROCEDURE
     Route: 048
     Dates: start: 20130726, end: 20130812

REACTIONS (2)
  - Renal impairment [Recovered/Resolved]
  - Blood creatine phosphokinase increased [Recovered/Resolved]
